FAERS Safety Report 6906812-4 (Version None)
Quarter: 2010Q3

REPORT INFORMATION
  Report Type: 
  Country: None (occurrence: None)
  Receive Date: 20100802
  Receipt Date: 20100715
  Transmission Date: 20110219
  Serious: Yes (Hospitalization, Other)
  Sender: FDA-Public Use
  Company Number: 2009S1003997

PATIENT
  Age: 58 Year
  Sex: Female
  Weight: 41.2773 kg

DRUGS (9)
  1. PHOSPHOSODA FLAVOR NOT SPECIFIED [Suspect]
     Indication: COLONOSCOPY
     Dosage: 90 ML; TOTAL; PO
     Route: 048
     Dates: start: 20070611, end: 20070611
  2. BENICAR HCT [Concomitant]
  3. SYNTHROID [Concomitant]
  4. VYTORIN [Concomitant]
  5. ASPIRIN [Concomitant]
  6. PREVACID [Concomitant]
  7. WOMEN'S MULTI [Concomitant]
  8. EXCEDRIN (MIGRAINE) [Concomitant]
  9. VITAMIN B COMPLEX CAP [Concomitant]

REACTIONS (8)
  - ACUTE PHOSPHATE NEPHROPATHY [None]
  - HEAT EXHAUSTION [None]
  - HYPOVOLAEMIA [None]
  - INAPPROPRIATE SCHEDULE OF DRUG ADMINISTRATION [None]
  - NAUSEA [None]
  - PRESYNCOPE [None]
  - RENAL FAILURE CHRONIC [None]
  - URINARY TRACT INFECTION [None]
